FAERS Safety Report 16940987 (Version 1)
Quarter: 2019Q4

REPORT INFORMATION
  Report Type: Spontaneous
  Country: US (occurrence: US)
  Receive Date: 20191019
  Receipt Date: 20191019
  Transmission Date: 20200122
  Serious: Yes (Hospitalization, Disabling, Other)
  Sender: FDA-Public Use
  Company Number: None

PATIENT
  Age: 11 Year
  Sex: Male
  Weight: 40.5 kg

DRUGS (1)
  1. MIRALAX [Suspect]
     Active Substance: POLYETHYLENE GLYCOL 3350
     Indication: CONSTIPATION
     Dosage: ?          QUANTITY:7 CAP FULLS;?
     Route: 048
     Dates: start: 20170915, end: 20170915

REACTIONS (5)
  - Hallucination [None]
  - Feeling abnormal [None]
  - Faeces discoloured [None]
  - Schizophrenia [None]
  - Aggression [None]

NARRATIVE: CASE EVENT DATE: 20170915
